FAERS Safety Report 25979211 (Version 1)
Quarter: 2025Q4

REPORT INFORMATION
  Report Type: Spontaneous
  Country: US (occurrence: US)
  Receive Date: 20251030
  Receipt Date: 20251030
  Transmission Date: 20260118
  Serious: No
  Sender: CIPLA
  Company Number: US-CIPLA LTD.-2025US13433

PATIENT

DRUGS (1)
  1. DICLOFENAC [Suspect]
     Active Substance: DICLOFENAC
     Indication: Analgesic therapy
     Dosage: UNK, QD (APPLIED IT ONCE DAILY) (PRESCRIBED THE MEDICATION TO BE USED FOUR TIMES A DAY)
     Route: 061

REACTIONS (2)
  - Peripheral swelling [Not Recovered/Not Resolved]
  - Inappropriate schedule of product administration [Unknown]
